FAERS Safety Report 16982012 (Version 2)
Quarter: 2020Q1

REPORT INFORMATION
  Report Type: Spontaneous
  Country: US (occurrence: US)
  Receive Date: 20191101
  Receipt Date: 20200102
  Transmission Date: 20200409
  Serious: Yes (Other)
  Sender: FDA-Public Use
  Company Number: US-009507513-1806USA007418

PATIENT
  Sex: Male

DRUGS (3)
  1. ZOSTAVAX [Suspect]
     Active Substance: VARICELLA-ZOSTER VIRUS STRAIN OKA/MERCK LIVE ANTIGEN
     Indication: PROPHYLAXIS
     Dosage: .65 MILLILITER
     Route: 058
     Dates: start: 20131002
  2. ZOSTAVAX [Suspect]
     Active Substance: VARICELLA-ZOSTER VIRUS STRAIN OKA/MERCK LIVE ANTIGEN
     Indication: ROUTINE HEALTH MAINTENANCE
  3. STERILE DILUENT (WATER) [Suspect]
     Active Substance: WATER
     Dosage: UNK
     Route: 058
     Dates: start: 20131002, end: 20131002

REACTIONS (10)
  - Back injury [Unknown]
  - Gastric disorder [Unknown]
  - Foot operation [Recovered/Resolved]
  - Affective disorder [Recovered/Resolved]
  - Herpes zoster [Unknown]
  - Osteomyelitis [Recovered/Resolved]
  - Back pain [Recovered/Resolved]
  - Insomnia [Recovered/Resolved]
  - Vaccination failure [Unknown]
  - Blood cholesterol [Not Recovered/Not Resolved]

NARRATIVE: CASE EVENT DATE: 20131002
